FAERS Safety Report 8349770-0 (Version None)
Quarter: 2012Q2

REPORT INFORMATION
  Report Type: 
  Country: None (occurrence: None)
  Receive Date: 20120510
  Receipt Date: 20120502
  Transmission Date: 20120825
  Serious: Yes (Hospitalization, Other)
  Sender: FDA-Public Use
  Company Number: US-AMGEN-USASP2012027789

PATIENT
  Age: 63 Year
  Sex: Female

DRUGS (2)
  1. ENBREL [Suspect]
     Indication: RHEUMATOID ARTHRITIS
     Dosage: 50 MG, QWK
     Dates: start: 20100302, end: 20120401
  2. ORENCIA [Concomitant]

REACTIONS (18)
  - OPEN WOUND [None]
  - FALL [None]
  - SEPSIS [None]
  - WALKING AID USER [None]
  - WHITE BLOOD CELL COUNT DECREASED [None]
  - RASH PRURITIC [None]
  - SKIN ULCER [None]
  - BURNING SENSATION [None]
  - RASH GENERALISED [None]
  - RASH ERYTHEMATOUS [None]
  - BREAKTHROUGH PAIN [None]
  - ASTHENIA [None]
  - MUSCULOSKELETAL DISCOMFORT [None]
  - PHOTOPHOBIA [None]
  - DRUG INEFFECTIVE [None]
  - BLISTER [None]
  - BALANCE DISORDER [None]
  - BODY TEMPERATURE INCREASED [None]
